FAERS Safety Report 9227923 (Version 1)
Quarter: 2013Q2

REPORT INFORMATION
  Report Type: Spontaneous
  Country: US (occurrence: None)
  Receive Date: 20130411
  Receipt Date: 20130411
  Transmission Date: 20140414
  Serious: Yes (Other)
  Sender: FDA-Public Use
  Company Number: None

PATIENT
  Age: 52 Year
  Sex: Female
  Weight: 65.77 kg

DRUGS (2)
  1. ANASTROZOLE [Suspect]
     Indication: BREAST CANCER RECURRENT
     Dosage: 1 PILL EACH DAY
     Dates: start: 20130314, end: 20130408
  2. ANASTROZOLE [Suspect]
     Indication: PROPHYLAXIS
     Dosage: 1 PILL EACH DAY
     Dates: start: 20130314, end: 20130408

REACTIONS (2)
  - Depression [None]
  - Impaired work ability [None]
